FAERS Safety Report 10365440 (Version 1)
Quarter: 2014Q3

REPORT INFORMATION
  Report Type: Spontaneous
  Country: GB (occurrence: GB)
  Receive Date: 20140806
  Receipt Date: 20140806
  Transmission Date: 20150326
  Serious: Yes (Hospitalization)
  Sender: FDA-Public Use
  Company Number: GB-TEVA-497960ISR

PATIENT
  Age: 89 Year
  Sex: Female
  Weight: 53 kg

DRUGS (7)
  1. ALENDRONATE [Concomitant]
     Active Substance: ALENDRONATE SODIUM
  2. ADCAL-D3 [Concomitant]
     Active Substance: CALCIUM CARBONATE\CHOLECALCIFEROL
  3. LAXIDO [Concomitant]
     Active Substance: POLYETHYLENE GLYCOL 3350\POTASSIUM CHLORIDE\SODIUM BICARBONATE\SODIUM CHLORIDE
  4. PARACETAMOL [Concomitant]
     Active Substance: ACETAMINOPHEN
  5. PIROXICAM. [Concomitant]
     Active Substance: PIROXICAM
  6. TRIMETHOPRIM. [Suspect]
     Active Substance: TRIMETHOPRIM
     Indication: URINARY TRACT INFECTION
     Dosage: PRESCRIBED 200MG TWICE DAILY FOR THREE DAYS
     Route: 048
     Dates: start: 20140704, end: 20140706
  7. OMEPRAZOLE. [Suspect]
     Active Substance: OMEPRAZOLE
     Indication: PEPTIC ULCER
     Dosage: 20 MILLIGRAM DAILY; LONG TERM
     Route: 048
     Dates: start: 20130103, end: 20140706

REACTIONS (5)
  - Fall [Unknown]
  - Incorrect dose administered [Unknown]
  - Delirium [Unknown]
  - Hyponatraemia [Recovered/Resolved]
  - Accidental overdose [Unknown]

NARRATIVE: CASE EVENT DATE: 20140706
